FAERS Safety Report 5130842-9 (Version None)
Quarter: 2006Q4

REPORT INFORMATION
  Report Type: 
  Country: None (occurrence: None)
  Receive Date: 20061017
  Receipt Date: 20061017
  Transmission Date: 20070319
  Serious: Yes (Life-Threatening, Hospitalization, Other)
  Sender: FDA-Public Use
  Company Number: None

PATIENT
  Age: 59 Year
  Sex: Female

DRUGS (4)
  1. HERCEPTIN [Suspect]
     Indication: BREAST CANCER STAGE III
  2. XELODA [Concomitant]
  3. PERCOCET [Concomitant]
  4. DURAGESIC-100 [Concomitant]

REACTIONS (5)
  - ANAPHYLACTIC REACTION [None]
  - CHILLS [None]
  - CREPITATIONS [None]
  - DYSPNOEA [None]
  - HYPERSENSITIVITY [None]
